FAERS Safety Report 25954470 (Version 1)
Quarter: 2025Q4

REPORT INFORMATION
  Report Type: Spontaneous
  Country: US (occurrence: US)
  Receive Date: 20251024
  Receipt Date: 20251024
  Transmission Date: 20260118
  Serious: No
  Sender: ROCHE
  Company Number: US-ROCHE-10000414671

PATIENT
  Sex: Male

DRUGS (10)
  1. ESBRIET [Suspect]
     Active Substance: PIRFENIDONE
     Indication: Idiopathic pulmonary fibrosis
     Route: 065
  2. ALLOPURINOL TAB 300MG [Concomitant]
  3. AMLODIPINE B TAB 10MG [Concomitant]
  4. ATORVASTATIN TAB 80MG [Concomitant]
  5. IBUPROFEN CAP 200MG [Concomitant]
  6. OMEPRAZOLE TBD 20MG [Concomitant]
  7. PEPCID AC MA TAB 20MG [Concomitant]
  8. TAMSULOSIN H CAP 0.4MG [Concomitant]
  9. VITAMIN D3 CAP 1000UNIT [Concomitant]
     Dosage: 1000 UNIT
  10. ZYRTEC ALLER CAP 10MG [Concomitant]

REACTIONS (1)
  - Fatigue [Unknown]
